FAERS Safety Report 14727227 (Version 4)
Quarter: 2018Q2

REPORT INFORMATION
  Report Type: Report from Study
  Country: US (occurrence: US)
  Receive Date: 20180406
  Receipt Date: 20180618
  Transmission Date: 20180711
  Serious: Yes (Other)
  Sender: FDA-Public Use
  Company Number: US-GILEAD-2018-0330753

PATIENT
  Age: 70 Year
  Sex: Male

DRUGS (7)
  1. ATENOLOL. [Suspect]
     Active Substance: ATENOLOL
     Indication: PRODUCT USED FOR UNKNOWN INDICATION
     Route: 065
  2. VERAPAMIL [Suspect]
     Active Substance: VERAPAMIL HYDROCHLORIDE
     Indication: PRODUCT USED FOR UNKNOWN INDICATION
     Route: 065
  3. LOSARTAN. [Concomitant]
     Active Substance: LOSARTAN
  4. AMBRISENTAN [Suspect]
     Active Substance: AMBRISENTAN
     Indication: PULMONARY ARTERIAL HYPERTENSION
     Dosage: 10 MG, QD
     Route: 065
     Dates: start: 20140724
  5. LISINOPRIL. [Concomitant]
     Active Substance: LISINOPRIL
  6. ADCIRCA [Concomitant]
     Active Substance: TADALAFIL
  7. SILDENAFIL. [Concomitant]
     Active Substance: SILDENAFIL

REACTIONS (10)
  - Hypotension [Recovered/Resolved]
  - Peripheral swelling [Unknown]
  - Dizziness [Recovered/Resolved]
  - Joint swelling [Unknown]
  - Oxygen saturation decreased [Recovered/Resolved]
  - Malaise [Recovered/Resolved]
  - Dyspnoea [Recovered/Resolved]
  - Chest pain [Not Recovered/Not Resolved]
  - Heart rate decreased [Recovered/Resolved]
  - Chest pain [Recovered/Resolved]
